FAERS Safety Report 25521352 (Version 3)
Quarter: 2025Q4

REPORT INFORMATION
  Report Type: Report from Study
  Country: US (occurrence: US)
  Receive Date: 20250705
  Receipt Date: 20251124
  Transmission Date: 20260117
  Serious: No
  Sender: TRAVERE THERAPEUTICS
  Company Number: US-TRAVERE-2025TVT00920

PATIENT
  Age: 39 Year
  Sex: Male
  Weight: 99.79 kg

DRUGS (4)
  1. FILSPARI [Suspect]
     Active Substance: SPARSENTAN
     Indication: IgA nephropathy
     Dosage: 1 TABLET, ONCE DAILY FOR DAYS 1-14
     Route: 048
     Dates: start: 202505, end: 202505
  2. FILSPARI [Suspect]
     Active Substance: SPARSENTAN
     Dosage: EXPIRY DATE: 30-AUG-2026
     Route: 048
     Dates: start: 202505, end: 20251017
  3. CRESTOR [Concomitant]
     Active Substance: ROSUVASTATIN CALCIUM
  4. WEGOVY [Concomitant]
     Active Substance: SEMAGLUTIDE

REACTIONS (3)
  - Abdominal pain upper [Unknown]
  - Depressed mood [Recovered/Resolved]
  - Somnolence [Recovered/Resolved]

NARRATIVE: CASE EVENT DATE: 20250501
